FAERS Safety Report 17016422 (Version 1)
Quarter: 2019Q4

REPORT INFORMATION
  Report Type: Spontaneous
  Country: GB (occurrence: GB)
  Receive Date: 20191111
  Receipt Date: 20191111
  Transmission Date: 20200122
  Serious: Yes (Life-Threatening, Hospitalization, Other)
  Sender: FDA-Public Use
  Company Number: GB-SA-2019SA311248

PATIENT
  Age: 56 Year
  Sex: Male
  Weight: 62.5 kg

DRUGS (5)
  1. DUPILUMAB [Suspect]
     Active Substance: DUPILUMAB
     Indication: ECZEMA
     Dosage: 300 MG
     Route: 003
     Dates: start: 20181001, end: 20190101
  2. CICLOSPORIN [Concomitant]
     Active Substance: CYCLOSPORINE
     Indication: ECZEMA
  3. OMEPRAZOLE. [Concomitant]
     Active Substance: OMEPRAZOLE
  4. BETAMETHASONE. [Concomitant]
     Active Substance: BETAMETHASONE
  5. EPADERM [Concomitant]
     Active Substance: MINERAL OIL\PETROLATUM\WAX, EMULSIFYING

REACTIONS (9)
  - Vasculitis [Not Recovered/Not Resolved]
  - Pneumonia [Unknown]
  - Amnesia [Unknown]
  - Lethargy [Unknown]
  - Malaise [Unknown]
  - Respiratory failure [Unknown]
  - Cerebrovascular accident [Not Recovered/Not Resolved]
  - Abnormal loss of weight [Recovered/Resolved]
  - Confusional state [Unknown]

NARRATIVE: CASE EVENT DATE: 20190313
